FAERS Safety Report 6823901-3 (Version None)
Quarter: 2010Q3

REPORT INFORMATION
  Report Type: 
  Country: None (occurrence: None)
  Receive Date: 20100708
  Receipt Date: 20060922
  Transmission Date: 20110219
  Serious: No
  Sender: FDA-Public Use
  Company Number: US-PFIZER INC-2006116042

PATIENT
  Sex: Male
  Weight: 84.37 kg

DRUGS (4)
  1. CHANTIX [Suspect]
     Dates: start: 20060919
  2. DEPAKOTE [Concomitant]
  3. CARBAMAZEPINE [Concomitant]
  4. LEXAPRO [Concomitant]

REACTIONS (1)
  - DYSARTHRIA [None]
